FAERS Safety Report 4630484-5 (Version None)
Quarter: 2005Q2

REPORT INFORMATION
  Report Type: 
  Country: None (occurrence: None)
  Receive Date: 20050406
  Receipt Date: 20050318
  Transmission Date: 20051028
  Serious: Yes (Other)
  Sender: FDA-Public Use
  Company Number: US_0503114650

PATIENT
  Age: 15 Year
  Sex: Male
  Weight: 54 kg

DRUGS (1)
  1. HUMATROPE [Suspect]
     Indication: BODY HEIGHT BELOW NORMAL
     Dosage: 4.8  MG WEEK
     Dates: start: 20030601, end: 20041115

REACTIONS (5)
  - CONDITION AGGRAVATED [None]
  - GROWTH RETARDATION [None]
  - KYPHOSIS [None]
  - PAIN [None]
  - POSTURE ABNORMAL [None]
